FAERS Safety Report 16386236 (Version 1)
Quarter: 2019Q2

REPORT INFORMATION
  Report Type: Spontaneous
  Country: FI (occurrence: FI)
  Receive Date: 20190603
  Receipt Date: 20190603
  Transmission Date: 20190711
  Serious: Yes (Hospitalization)
  Sender: FDA-Public Use
  Company Number: FI-B.I. PHARMACEUTICALS,INC./RIDGEFIELD-2019-12-001790

PATIENT
  Age: 51 Year
  Sex: Female

DRUGS (2)
  1. DIFORMIN [Concomitant]
     Active Substance: METFORMIN HYDROCHLORIDE
     Indication: TYPE 2 DIABETES MELLITUS
     Dosage: 2250,MG,DAILY
     Route: 065
  2. JARDIANCE [Suspect]
     Active Substance: EMPAGLIFLOZIN
     Indication: TYPE 2 DIABETES MELLITUS
     Dosage: 25,MG,DAILY
     Route: 048
     Dates: end: 20190517

REACTIONS (2)
  - Ketoacidosis [Recovered/Resolved]
  - Metabolic acidosis [Recovered/Resolved]

NARRATIVE: CASE EVENT DATE: 2019
